FAERS Safety Report 8983167 (Version 1)
Quarter: 2012Q4

REPORT INFORMATION
  Report Type: Report from Study
  Country: NL (occurrence: NL)
  Receive Date: 20121224
  Receipt Date: 20121224
  Transmission Date: 20130627
  Serious: Yes (Death, Hospitalization)
  Sender: FDA-Public Use
  Company Number: NL-ASTELLAS-2012EU010985

PATIENT
  Age: 63 Year
  Sex: Male
  Weight: 66 kg

DRUGS (4)
  1. TACROLIMUS SYSTEMIC [Suspect]
     Indication: RENAL TRANSPLANT
     Dosage: 16 mg, Unknown/D
     Route: 065
     Dates: start: 20090311
  2. RITUXIMAB [Suspect]
     Indication: FOCAL SEGMENTAL GLOMERULOSCLEROSIS
     Dosage: 1000 mg, bid
     Route: 065
     Dates: start: 20090402, end: 20090416
  3. MYCOPHENOLATE MOFETIL [Suspect]
     Indication: RENAL TRANSPLANT
     Dosage: 1500 mg, Unknown/D
     Route: 065
     Dates: start: 20090311
  4. PREDNISOLON                        /00016201/ [Suspect]
     Indication: RENAL TRANSPLANT
     Dosage: 7.5 mg, Unknown/D
     Route: 065
     Dates: start: 20090310

REACTIONS (2)
  - Lung cancer metastatic [Fatal]
  - Tumour pain [Recovered/Resolved with Sequelae]
